FAERS Safety Report 13523707 (Version 3)
Quarter: 2017Q4

REPORT INFORMATION
  Report Type: Report from Study
  Country: US (occurrence: US)
  Receive Date: 20170508
  Receipt Date: 20171009
  Transmission Date: 20180320
  Serious: Yes (Hospitalization)
  Sender: FDA-Public Use
  Company Number: US-BAYER-2017-082107

PATIENT
  Age: 65 Year
  Sex: Female
  Weight: 75.74 kg

DRUGS (6)
  1. REMODULIN [Concomitant]
     Active Substance: TREPROSTINIL
     Indication: PULMONARY ARTERIAL HYPERTENSION
     Dosage: UNK
     Route: 058
  2. ADEMPAS [Suspect]
     Active Substance: RIOCIGUAT
     Indication: PULMONARY ARTERIAL HYPERTENSION
     Dosage: 0.5 MG, TID
  3. REMODULIN [Concomitant]
     Active Substance: TREPROSTINIL
     Indication: PULMONARY ARTERIAL HYPERTENSION
     Dosage: 0.041 ?G/KG, UNK
     Dates: start: 20160302
  4. ADEMPAS [Suspect]
     Active Substance: RIOCIGUAT
     Indication: PULMONARY ARTERIAL HYPERTENSION
     Dosage: UNK
     Dates: start: 20170330
  5. LETAIRIS [Concomitant]
     Active Substance: AMBRISENTAN
     Dosage: UNK
  6. ADEMPAS [Suspect]
     Active Substance: RIOCIGUAT
     Indication: PULMONARY ARTERIAL HYPERTENSION
     Dosage: 0.5 MG, TID
     Route: 048

REACTIONS (6)
  - Abdominal pain upper [None]
  - Hospitalisation [Recovered/Resolved]
  - Gait disturbance [Unknown]
  - Arrhythmia [Recovered/Resolved]
  - Drug hypersensitivity [None]
  - Pallor [Unknown]

NARRATIVE: CASE EVENT DATE: 20170427
